FAERS Safety Report 8354026-6 (Version None)
Quarter: 2012Q2

REPORT INFORMATION
  Report Type: 
  Country: None (occurrence: None)
  Receive Date: 20120511
  Receipt Date: 20120502
  Transmission Date: 20120825
  Serious: Yes (Other)
  Sender: FDA-Public Use
  Company Number: US-PERRIGO-12US003883

PATIENT
  Age: 10 Year
  Sex: Male

DRUGS (1)
  1. CETIRIZINE [Suspect]
     Indication: HYPERSENSITIVITY
     Dosage: 5 MG, SINGLE
     Route: 048
     Dates: start: 20120401, end: 20120401

REACTIONS (4)
  - HYPERSENSITIVITY [None]
  - ANAPHYLACTIC SHOCK [None]
  - SWOLLEN TONGUE [None]
  - PHARYNGEAL OEDEMA [None]
